FAERS Safety Report 17552608 (Version 1)
Quarter: 2020Q1

REPORT INFORMATION
  Report Type: Spontaneous
  Country: FR (occurrence: FR)
  Receive Date: 20200318
  Receipt Date: 20200318
  Transmission Date: 20200409
  Serious: Yes (Other)
  Sender: FDA-Public Use
  Company Number: FR-SUN PHARMACEUTICAL INDUSTRIES LTD-2020RR-240751

PATIENT
  Age: 35 Year
  Sex: Female
  Weight: 63 kg

DRUGS (2)
  1. CLARITHROMYCINE ALMUS 500 MG, COMPRIME PELLICULE [Suspect]
     Active Substance: CLARITHROMYCIN
     Indication: TONSILLITIS
     Dosage: 2 DOSAGE FORM, DAILY
     Route: 048
     Dates: start: 20200206, end: 20200212
  2. PARACETAMOL [Suspect]
     Active Substance: ACETAMINOPHEN
     Indication: PAIN
     Dosage: UNK
     Route: 048
     Dates: start: 20200206, end: 20200212

REACTIONS (3)
  - Nausea [Recovered/Resolved]
  - Vomiting [Recovered/Resolved]
  - Weight decreased [Recovered/Resolved]

NARRATIVE: CASE EVENT DATE: 20200208
